FAERS Safety Report 7051962-8 (Version None)
Quarter: 2010Q4

REPORT INFORMATION
  Report Type: 
  Country: None (occurrence: None)
  Receive Date: 20101019
  Receipt Date: 20101015
  Transmission Date: 20110411
  Serious: Yes (Other)
  Sender: FDA-Public Use
  Company Number: US-WYE-H17685410

PATIENT
  Sex: Female
  Weight: 81.72 kg

DRUGS (5)
  1. TORISEL [Suspect]
     Indication: RENAL CANCER METASTATIC
     Route: 042
     Dates: start: 20100824
  2. IRON [Concomitant]
  3. ZOCOR [Concomitant]
     Indication: BLOOD CHOLESTEROL
  4. ASPIRIN [Concomitant]
     Dosage: UNSPECIFIED
  5. ACETAMINOPHEN AND OXYCODONE HCL [Concomitant]
     Dosage: UNSPECIFIED

REACTIONS (2)
  - BLOOD CREATININE INCREASED [None]
  - BLOOD UREA INCREASED [None]
